FAERS Safety Report 6159215-7 (Version None)
Quarter: 2009Q2

REPORT INFORMATION
  Report Type: 
  Country: None (occurrence: None)
  Receive Date: 20090417
  Receipt Date: 20090407
  Transmission Date: 20091009
  Serious: Yes (Hospitalization)
  Sender: FDA-Public Use
  Company Number: ES-ELI_LILLY_AND_COMPANY-ES200904001674

PATIENT
  Age: 86 Year
  Sex: Female

DRUGS (3)
  1. FORTEO [Suspect]
     Indication: OSTEOPOROSIS
     Dosage: 20 UG, UNK
     Route: 058
     Dates: start: 20080301, end: 20090402
  2. SINTROM [Concomitant]
  3. URBASON /00049601/ [Concomitant]

REACTIONS (4)
  - ASTHENIA [None]
  - INTESTINAL OBSTRUCTION [None]
  - PYREXIA [None]
  - URINARY TRACT INFECTION [None]
